FAERS Safety Report 17341173 (Version 1)
Quarter: 2020Q1

REPORT INFORMATION
  Report Type: Spontaneous
  Country: US (occurrence: US)
  Receive Date: 20200129
  Receipt Date: 20200129
  Transmission Date: 20200409
  Serious: No
  Sender: FDA-Public Use
  Company Number: US-SMITH AND NEPHEW, INC-2019SMT00063

PATIENT
  Sex: Female
  Weight: 97.51 kg

DRUGS (1)
  1. REGRANEX [Suspect]
     Active Substance: BECAPLERMIN
     Indication: DIABETIC WOUND
     Dosage: AS DIRECTED BY HER HCP, 1X/DAY (12 HOURS ON AND 12 HOURS OFF) TO RIGHT TOE WOUND
     Route: 061
     Dates: start: 2019

REACTIONS (1)
  - Wound complication [Not Recovered/Not Resolved]

NARRATIVE: CASE EVENT DATE: 2019
